FAERS Safety Report 12973851 (Version 2)
Quarter: 2016Q4

REPORT INFORMATION
  Report Type: Spontaneous
  Country: JP (occurrence: JP)
  Receive Date: 20161124
  Receipt Date: 20161202
  Transmission Date: 20170207
  Serious: No
  Sender: FDA-Public Use
  Company Number: JP-ASTRAZENECA-2016SF24285

PATIENT
  Sex: Female

DRUGS (1)
  1. NEXIUM [Suspect]
     Active Substance: ESOMEPRAZOLE MAGNESIUM
     Dosage: 10.0MG UNKNOWN
     Route: 048
     Dates: start: 201603, end: 2016

REACTIONS (1)
  - Large intestine polyp [Recovering/Resolving]
